FAERS Safety Report 7150863-4 (Version None)
Quarter: 2010Q4

REPORT INFORMATION
  Report Type: 
  Country: None (occurrence: None)
  Receive Date: 20101124
  Receipt Date: 20101115
  Transmission Date: 20110411
  Serious: Yes (Hospitalization)
  Sender: FDA-Public Use
  Company Number: US-001389

PATIENT
  Sex: Female
  Weight: 10.4 kg

DRUGS (13)
  1. NAGLAZYME [Suspect]
     Indication: MUCOPOLYSACCHARIDOSIS VI
     Dosage: 10 MG 1X/WEEK INTRAVENOUS DRIP
     Route: 041
  2. NAFCILLIN [Concomitant]
  3. ALBUTEROL [Concomitant]
  4. FLONASE [Concomitant]
  5. CAPTOPRIL [Concomitant]
  6. GLYCOPYRROLATE /00196202/ [Concomitant]
  7. BUDESONIDE [Concomitant]
  8. POLYETHYLENE GLYCOL [Concomitant]
  9. RANITIDINE [Concomitant]
  10. FERROUS SULFATE [Concomitant]
  11. CLARITIN /00917501/ [Concomitant]
  12. BOOST [Concomitant]
  13. PEDIASURE [Concomitant]

REACTIONS (11)
  - COUGH [None]
  - DEVICE RELATED INFECTION [None]
  - HAEMATOCRIT DECREASED [None]
  - HYPERCHLORHYDRIA [None]
  - INCREASED BRONCHIAL SECRETION [None]
  - LYMPHOCYTE PERCENTAGE INCREASED [None]
  - NEUTROPHIL PERCENTAGE INCREASED [None]
  - PLATELET COUNT DECREASED [None]
  - RHINORRHOEA [None]
  - VOMITING [None]
  - WHITE BLOOD CELL COUNT DECREASED [None]
